FAERS Safety Report 18544664 (Version 1)
Quarter: 2020Q4

REPORT INFORMATION
  Report Type: Spontaneous
  Country: US (occurrence: US)
  Receive Date: 20201124
  Receipt Date: 20201124
  Transmission Date: 20210114
  Serious: Yes (Other)
  Sender: FDA-Public Use
  Company Number: None

PATIENT
  Age: 64 Year
  Sex: Female

DRUGS (15)
  1. FUROSEMIDE. [Suspect]
     Active Substance: FUROSEMIDE
  2. CLOBETASOL [Suspect]
     Active Substance: CLOBETASOL
  3. OPSUMIT [Suspect]
     Active Substance: MACITENTAN
     Indication: PULMONARY ARTERIAL HYPERTENSION
     Route: 048
     Dates: start: 201709
  4. VITAMIN D3 [Suspect]
     Active Substance: CHOLECALCIFEROL
  5. VITAMIN C [Suspect]
     Active Substance: ASCORBIC ACID
  6. TACROLIMUS TOP OINT [Concomitant]
  7. LISINOPRIL. [Suspect]
     Active Substance: LISINOPRIL
  8. HUMULIN N [Suspect]
     Active Substance: INSULIN HUMAN
  9. METFORMIN [Suspect]
     Active Substance: METFORMIN HYDROCHLORIDE
  10. ASPIRIN. [Suspect]
     Active Substance: ASPIRIN
  11. VOLTAREN TOP GEL [Concomitant]
  12. ADVAIR DISKUS [Suspect]
     Active Substance: FLUTICASONE PROPIONATE\SALMETEROL XINAFOATE
  13. HUMULIN R [Suspect]
     Active Substance: INSULIN HUMAN
  14. ATORVASTATIN [Suspect]
     Active Substance: ATORVASTATIN
  15. SCLP SOLN [Concomitant]

REACTIONS (3)
  - Hypertension [None]
  - Palpitations [None]
  - Dyspnoea [None]

NARRATIVE: CASE EVENT DATE: 20201121
